FAERS Safety Report 8402761-3 (Version None)
Quarter: 2012Q2

REPORT INFORMATION
  Report Type: 
  Country: None (occurrence: None)
  Receive Date: 20120601
  Receipt Date: 20120524
  Transmission Date: 20120825
  Serious: Yes (Hospitalization)
  Sender: FDA-Public Use
  Company Number: US-BAYER-2012-044799

PATIENT
  Age: 47 Year
  Sex: Female
  Weight: 81.633 kg

DRUGS (21)
  1. DIPHENHYDRAMINE HCL [Concomitant]
  2. ELETRIPTAN [Concomitant]
     Dosage: 40 MG, PRN, MAY REPEAT IN 2 HOURS IF NECESSARY
     Route: 048
     Dates: start: 20100423
  3. EXCEDRIN [CAFFEINE,PARACETAMOL] [Concomitant]
     Indication: HEADACHE
     Dosage: UNK
     Dates: start: 20100401
  4. YASMIN [Suspect]
     Dosage: UNK
     Dates: start: 20080721
  5. LEVOTHYROXINE SODIUM [Concomitant]
     Dosage: UNK
     Dates: start: 19981224
  6. BENADRYL [Concomitant]
     Indication: MULTIPLE ALLERGIES
  7. YASMIN [Suspect]
     Indication: MENORRHAGIA
     Dosage: UNK
     Dates: start: 20050217, end: 20071121
  8. IBUPROFEN [Concomitant]
     Indication: MUSCULOSKELETAL PAIN
     Dosage: UNK UNK, PRN
  9. DROSPIRENONE AND ETHINYL ESTRADIOL [Suspect]
     Indication: MENORRHAGIA
     Dosage: UNK
     Dates: start: 20090208
  10. DROSPIRENONE AND ETHINYL ESTRADIOL [Suspect]
     Dosage: UNK
     Dates: start: 20090430
  11. FISH OIL [Concomitant]
     Indication: BLOOD CHOLESTEROL DECREASED
     Dosage: UNK
     Dates: start: 20100401
  12. BENADRYL [Concomitant]
     Indication: HEADACHE
  13. YAZ [Suspect]
     Indication: CONTRACEPTION
     Dosage: UNK
     Dates: start: 20090101, end: 20100425
  14. CALCIUM [Concomitant]
     Indication: BONE DENSITY INCREASED
     Dosage: UNK
     Dates: start: 20100401
  15. VITAMIN D [Concomitant]
     Indication: BONE DENSITY INCREASED
     Dosage: UNK
     Dates: start: 20100401
  16. CALCIUM CARBONATE W/COLECALCIFEROL [Concomitant]
     Dosage: UNK, BID
     Route: 048
  17. YAZ [Suspect]
     Indication: MENORRHAGIA
  18. LEVOTHYROXINE SODIUM [Concomitant]
     Dosage: 75 MCG/24HR, UNK
  19. YASMIN [Suspect]
     Dosage: UNK
     Dates: start: 20080428
  20. LEVOTHYROXINE SODIUM [Concomitant]
     Dosage: UNK
     Route: 048
     Dates: start: 19870101
  21. XALATAN [Concomitant]
     Route: 047

REACTIONS (5)
  - NECK PAIN [None]
  - MUSCULOSKELETAL PAIN [None]
  - TRANSVERSE SINUS THROMBOSIS [None]
  - PAIN [None]
  - INJURY [None]
